FAERS Safety Report 9161108 (Version 2)
Quarter: 2020Q3

REPORT INFORMATION
  Report Type: Spontaneous
  Country: PT (occurrence: PT)
  Receive Date: 20130313
  Receipt Date: 20200709
  Transmission Date: 20201103
  Serious: Yes (Other)
  Sender: FDA-Public Use
  Company Number: PHHY2013PT023837

PATIENT
  Age: 48 Year
  Sex: Female

DRUGS (3)
  1. OLANZAPINE. [Suspect]
     Active Substance: OLANZAPINE
     Indication: PRODUCT USED FOR UNKNOWN INDICATION
     Dosage: UNK
     Route: 065
  2. QUETIAPINE. [Suspect]
     Active Substance: QUETIAPINE
     Indication: HIV-ASSOCIATED NEUROCOGNITIVE DISORDER
     Dosage: UNK
     Route: 065
  3. PITAVASTATIN. [Concomitant]
     Active Substance: PITAVASTATIN CALCIUM
     Indication: PRODUCT USED FOR UNKNOWN INDICATION
     Dosage: UNK
     Route: 065

REACTIONS (8)
  - Urticaria [Recovered/Resolved]
  - Eosinophilia [Recovered/Resolved]
  - Blister [Recovered/Resolved]
  - Dermatitis bullous [Recovered/Resolved]
  - Skin plaque [Recovered/Resolved]
  - Pemphigoid [Recovered/Resolved]
  - Pruritus [Recovered/Resolved]
  - Skin erosion [Recovered/Resolved]
